FAERS Safety Report 9029834 (Version 2)
Quarter: 2013Q2

REPORT INFORMATION
  Report Type: Spontaneous
  Country: US (occurrence: US)
  Receive Date: 20130124
  Receipt Date: 20130409
  Transmission Date: 20140414
  Serious: Yes (Other)
  Sender: FDA-Public Use
  Company Number: CHPA2013US001433

PATIENT
  Age: 41 Year
  Sex: Female

DRUGS (1)
  1. EXCEDRIN ES BACK + BODY [Suspect]
     Indication: MUSCLE TIGHTNESS
     Dosage: 2 DF, PRN
     Route: 048
     Dates: start: 2011

REACTIONS (8)
  - Asthma [Not Recovered/Not Resolved]
  - Pain in extremity [Not Recovered/Not Resolved]
  - Back pain [Not Recovered/Not Resolved]
  - Hyperhidrosis [Recovered/Resolved]
  - Hypoaesthesia [Recovered/Resolved]
  - Crying [Unknown]
  - Off label use [Unknown]
  - Expired drug administered [Unknown]
